FAERS Safety Report 10647889 (Version 1)
Quarter: 2014Q4

REPORT INFORMATION
  Report Type: Report from Study
  Country: JP (occurrence: JP)
  Receive Date: 20141212
  Receipt Date: 20141212
  Transmission Date: 20150529
  Serious: Yes (Other)
  Sender: FDA-Public Use
  Company Number: JP-009507513-1412JPN005433

PATIENT
  Age: 74 Year
  Sex: Female
  Weight: 56 kg

DRUGS (15)
  1. LANSOPRAZOLE. [Concomitant]
     Active Substance: LANSOPRAZOLE
     Indication: PROPHYLAXIS
     Dosage: 30 MG, QD
     Route: 048
     Dates: start: 20140707
  2. DEPAS [Concomitant]
     Active Substance: ETIZOLAM
     Indication: INSOMNIA
     Dosage: 0.5 MG, QD
     Route: 048
  3. PREMINENT [Concomitant]
     Active Substance: HYDROCHLOROTHIAZIDE\LOSARTAN POTASSIUM
     Indication: HYPERTENSION
     Dosage: UNK
     Route: 048
  4. MAGNOFIT (MAGNESIUM OXIDE) [Concomitant]
     Indication: CONSTIPATION
     Dosage: 1980 MG,QD
     Route: 048
  5. PEGINTRON [Suspect]
     Active Substance: PEGINTERFERON ALFA-2B
     Indication: CHRONIC HEPATITIS C
     Dosage: 90 MICROGRAM, QW
     Route: 058
     Dates: start: 20140707, end: 20140922
  6. SIMEPREVIR [Suspect]
     Active Substance: SIMEPREVIR
     Indication: CHRONIC HEPATITIS C
     Dosage: 100 MG, QD
     Route: 048
     Dates: start: 20140707, end: 20140928
  7. THYROID S (LEVOTHYROXINE SODIUM) [Concomitant]
     Indication: HYPOTHYROIDISM
     Dosage: 25 MG, QD
     Route: 048
  8. GLIMEPIRIDE. [Concomitant]
     Active Substance: GLIMEPIRIDE
     Indication: DIABETES MELLITUS
     Dosage: 1 MG, QD
     Route: 048
  9. ADALAT CC [Concomitant]
     Active Substance: NIFEDIPINE
     Indication: HYPERTENSION
     Dosage: 40 MG, QD
     Route: 048
  10. PEGINTRON [Suspect]
     Active Substance: PEGINTERFERON ALFA-2B
     Dosage: 80 MICROGRAM, QW
     Route: 058
     Dates: start: 20140929
  11. VOLTARENE (DICLOFENAC DIETHYLAMINE) [Concomitant]
     Dosage: 75 MG, QD
     Route: 048
     Dates: start: 20140707
  12. RIBAVIRIN. [Suspect]
     Active Substance: RIBAVIRIN
     Indication: CHRONIC HEPATITIS C
     Dosage: 600 MG, QD
     Route: 048
     Dates: start: 20140707
  13. CARDENALIN [Concomitant]
     Active Substance: DOXAZOSIN MESYLATE
     Indication: HYPERTENSION
     Dosage: 1 MG, QD
     Route: 048
  14. ALLEGRA [Concomitant]
     Active Substance: FEXOFENADINE HYDROCHLORIDE
     Indication: SENILE PRURITUS
     Dosage: 120 MG, QD
     Route: 048
  15. CARBOCYSTEINE [Concomitant]
     Active Substance: CARBOCYSTEINE
     Indication: BRONCHITIS CHRONIC
     Dosage: 1500 MG,QD
     Route: 048

REACTIONS (5)
  - Weight decreased [Unknown]
  - Neutrophil count decreased [Not Recovered/Not Resolved]
  - Dehydration [Recovered/Resolved]
  - Platelet count decreased [Not Recovered/Not Resolved]
  - Anaemia [Not Recovered/Not Resolved]

NARRATIVE: CASE EVENT DATE: 20140710
